FAERS Safety Report 10003905 (Version 2)
Quarter: 2014Q1

REPORT INFORMATION
  Report Type: Report from Study
  Country: CA (occurrence: CA)
  Receive Date: 20140312
  Receipt Date: 20140328
  Transmission Date: 20141002
  Serious: Yes (Other)
  Sender: FDA-Public Use
  Company Number: PHHY2014CA030167

PATIENT
  Sex: Female

DRUGS (6)
  1. ACLASTA [Suspect]
     Indication: OSTEOPOROSIS
     Dosage: YEARLY
     Route: 042
     Dates: start: 20100203
  2. ACLASTA [Suspect]
     Dosage: YEARLY
     Route: 042
     Dates: start: 20110203
  3. ACLASTA [Suspect]
     Dosage: YEARLY
     Route: 042
     Dates: start: 20120410
  4. ACLASTA [Suspect]
     Dosage: YEARLY
     Route: 042
     Dates: start: 20130410
  5. CALCIUM [Concomitant]
     Dosage: UNK UKN, UNK
  6. VITAMIN D [Concomitant]
     Dosage: UNK UKN, UNK

REACTIONS (2)
  - Bronchopulmonary aspergillosis [Unknown]
  - Myalgia [Unknown]
